FAERS Safety Report 6260338-2 (Version None)
Quarter: 2009Q3

REPORT INFORMATION
  Report Type: 
  Country: None (occurrence: None)
  Receive Date: 20090708
  Receipt Date: 20090701
  Transmission Date: 20100115
  Serious: Yes (Other)
  Sender: FDA-Public Use
  Company Number: PHHY2009JP26924

PATIENT
  Age: 76 Year
  Sex: Female

DRUGS (2)
  1. CYCLOSPORINE [Suspect]
     Indication: PUSTULAR PSORIASIS
     Dosage: UNK
  2. ETRETINATE [Concomitant]
     Indication: PUSTULAR PSORIASIS
     Dosage: UNK
     Route: 048
     Dates: start: 19820101

REACTIONS (1)
  - PEMPHIGOID [None]
